FAERS Safety Report 19200742 (Version 1)
Quarter: 2021Q2

REPORT INFORMATION
  Report Type: Spontaneous
  Country: US (occurrence: US)
  Receive Date: 20210430
  Receipt Date: 20210430
  Transmission Date: 20210717
  Serious: No
  Sender: FDA-Public Use
  Company Number: US-ASTRAZENECA-2021A276722

PATIENT
  Sex: Female

DRUGS (1)
  1. PULMICORT FLEXHALER [Suspect]
     Active Substance: BUDESONIDE
     Indication: MANUFACTURING LABORATORY ANALYTICAL TESTING ISSUE
     Dosage: 1 PUFF IN THE MORNING AND 1 PUFF IN THE EVENING
     Route: 055
     Dates: start: 20210401

REACTIONS (2)
  - Fatigue [Unknown]
  - Product label confusion [Unknown]
